FAERS Safety Report 8469390-7 (Version None)
Quarter: 2012Q2

REPORT INFORMATION
  Report Type: 
  Country: None (occurrence: None)
  Receive Date: 20120626
  Receipt Date: 20120619
  Transmission Date: 20120825
  Serious: Yes (Hospitalization, Other)
  Sender: FDA-Public Use
  Company Number: BR-PFIZER INC-2012148197

PATIENT
  Age: 73 Year
  Sex: Male

DRUGS (2)
  1. XALATAN [Suspect]
     Indication: GLAUCOMA
     Dosage: 1.5 UG, 1X/DAY (ONE DROP IN THE RIGHT EYE)
     Route: 047
     Dates: start: 20080101, end: 20090101
  2. CAPTOPRIL [Concomitant]
     Dosage: UNK
     Dates: start: 20020101

REACTIONS (2)
  - GLAUCOMA [None]
  - CATARACT [None]
